FAERS Safety Report 6414246-4 (Version None)
Quarter: 2009Q4

REPORT INFORMATION
  Report Type: 
  Country: None (occurrence: None)
  Receive Date: 20091026
  Receipt Date: 20091014
  Transmission Date: 20100525
  Serious: Yes (Life-Threatening)
  Sender: FDA-Public Use
  Company Number: MW-BRISTOL-MYERS SQUIBB COMPANY-14721344

PATIENT
  Age: 36 Year
  Sex: Male
  Weight: 83 kg

DRUGS (8)
  1. EFAVIRENZ [Suspect]
     Indication: HIV INFECTION
     Dosage: INTERRUPTED ON 12OCT2009.
     Route: 048
     Dates: start: 20090716
  2. TRUVADA [Suspect]
     Indication: HIV INFECTION
     Dosage: 1 DF = 200/300MG.
     Route: 048
     Dates: start: 20090716, end: 20091012
  3. ISONIAZID [Suspect]
     Indication: PULMONARY TUBERCULOSIS
     Dosage: EXPECTED TO FINISH TB MEDICATION ON 14-OCT-2009
     Dates: start: 20090414
  4. RIFAMPIN [Suspect]
     Indication: PULMONARY TUBERCULOSIS
     Dosage: EXPECTED TO FINISH TB MEDICATION ON 14-OCT-2009
     Dates: start: 20090414
  5. PODOPHYLLUM RESIN [Concomitant]
     Dates: start: 20090709
  6. COTRIM [Concomitant]
     Dosage: DISCONTINUED ON 16-JUL-2009
     Dates: start: 20090414, end: 20090716
  7. PYRAZINAMIDE [Concomitant]
     Indication: PULMONARY TUBERCULOSIS
     Dates: start: 20090414, end: 20090614
  8. ETHAMBUTOL HYDROCHLORIDE [Concomitant]
     Indication: PULMONARY TUBERCULOSIS
     Dates: start: 20090414, end: 20090614

REACTIONS (2)
  - HEPATITIS [None]
  - HYPOPHOSPHATAEMIA [None]
